FAERS Safety Report 13914419 (Version 1)
Quarter: 2017Q3

REPORT INFORMATION
  Report Type: Spontaneous
  Country: US (occurrence: US)
  Receive Date: 20170828
  Receipt Date: 20170828
  Transmission Date: 20171127
  Serious: No
  Sender: FDA-Public Use
  Company Number: US-ROCHE-1141000

PATIENT
  Sex: Female
  Weight: 60.6 kg

DRUGS (1)
  1. NUTROPIN AQ [Suspect]
     Active Substance: SOMATROPIN
     Indication: TURNER^S SYNDROME
     Dosage: 7 INJECTIONS PER WEEK
     Route: 058
     Dates: start: 19961119

REACTIONS (2)
  - Acanthosis nigricans [Unknown]
  - Melanocytic naevus [Unknown]
